FAERS Safety Report 10053170 (Version 1)
Quarter: 2014Q2

REPORT INFORMATION
  Report Type: Spontaneous
  Country: CG (occurrence: CG)
  Receive Date: 20140402
  Receipt Date: 20140402
  Transmission Date: 20141212
  Serious: Yes (Hospitalization, Disabling, Other)
  Sender: FDA-Public Use
  Company Number: CG-WATSON-2014-05933

PATIENT
  Age: 29 Year
  Sex: Female

DRUGS (2)
  1. BUPIVACAINE (UNKNOWN) [Suspect]
     Indication: SPINAL ANAESTHESIA
     Dosage: 10 MG, UNKNOWN
     Route: 039
  2. FENTANYL (UNKNOWN) [Suspect]
     Indication: SPINAL ANAESTHESIA
     Dosage: 25 ?G, UNK
     Route: 037

REACTIONS (2)
  - Ischaemic cerebral infarction [Unknown]
  - Hypotension [Recovered/Resolved]
